FAERS Safety Report 13804188 (Version 1)
Quarter: 2017Q3

REPORT INFORMATION
  Report Type: Spontaneous
  Country: GB (occurrence: GB)
  Receive Date: 20170728
  Receipt Date: 20170728
  Transmission Date: 20171127
  Serious: Yes (Hospitalization)
  Sender: FDA-Public Use
  Company Number: GB-TORRENT-00015447

PATIENT
  Age: 75 Year
  Sex: Male

DRUGS (14)
  1. ACIDEX [Concomitant]
     Active Substance: CALCIUM CARBONATE\SODIUM ALGINATE\SODIUM BICARBONATE
  2. SYMBICORT [Concomitant]
     Active Substance: BUDESONIDE\FORMOTEROL FUMARATE DIHYDRATE
  3. LORATADINE. [Concomitant]
     Active Substance: LORATADINE
  4. TIOTROPIUM [Concomitant]
     Active Substance: TIOTROPIUM
  5. SALBUTAMOL [Concomitant]
     Active Substance: ALBUTEROL
  6. FERROUS FUMARATE [Concomitant]
     Active Substance: FERROUS FUMARATE
  7. ALFUZOSIN [Concomitant]
     Active Substance: ALFUZOSIN
  8. SIMVASTATIN. [Concomitant]
     Active Substance: SIMVASTATIN
  9. ESOMEPRAZOLE [Suspect]
     Active Substance: ESOMEPRAZOLE
  10. LOSARTAN. [Suspect]
     Active Substance: LOSARTAN
  11. METFORMIN [Concomitant]
     Active Substance: METFORMIN HYDROCHLORIDE
  12. SITAGLIPTIN [Concomitant]
     Active Substance: SITAGLIPTIN
  13. FLIXONASE [Concomitant]
     Active Substance: FLUTICASONE PROPIONATE
  14. CARBOCISTEINE [Concomitant]
     Active Substance: CARBOCYSTEINE

REACTIONS (2)
  - Confusional state [Recovering/Resolving]
  - Hyponatraemia [Recovering/Resolving]

NARRATIVE: CASE EVENT DATE: 20170706
